FAERS Safety Report 11814068 (Version 4)
Quarter: 2016Q1

REPORT INFORMATION
  Report Type: Report from Study
  Country: BR (occurrence: BR)
  Receive Date: 20151209
  Receipt Date: 20160226
  Transmission Date: 20160525
  Serious: Yes (Death, Hospitalization)
  Sender: FDA-Public Use
  Company Number: PHHY2015BR161085

PATIENT
  Sex: Female
  Weight: 53.4 kg

DRUGS (1)
  1. EXJADE [Suspect]
     Active Substance: DEFERASIROX
     Indication: BONE MARROW FAILURE
     Dosage: 20 MG/KG, (2 DF OF 500 MG), QD
     Route: 048

REACTIONS (11)
  - Dyspnoea [Unknown]
  - Fatigue [Unknown]
  - Sepsis [Fatal]
  - Depressed mood [Unknown]
  - Pyrexia [Fatal]
  - Speech disorder [Unknown]
  - Hypoacusis [Unknown]
  - Haemorrhage intracranial [Unknown]
  - Visual acuity reduced [Unknown]
  - Septic shock [Fatal]
  - Asthenia [Fatal]
